FAERS Safety Report 6058867-X (Version None)
Quarter: 2009Q1

REPORT INFORMATION
  Report Type: 
  Country: None (occurrence: None)
  Receive Date: 20090130
  Receipt Date: 20090123
  Transmission Date: 20090719
  Serious: Yes (Other)
  Sender: FDA-Public Use
  Company Number: US-GENENTECH-276060

PATIENT
  Sex: Male
  Weight: 100.68 kg

DRUGS (7)
  1. XOLAIR [Suspect]
     Indication: HYPERSENSITIVITY
     Dosage: 375 MG, SINGLE
     Route: 058
     Dates: start: 20081218
  2. XOLAIR [Suspect]
     Indication: ASTHMA
  3. SINGULAIR [Concomitant]
     Indication: DRUG USE FOR UNKNOWN INDICATION
  4. VERAMYST [Concomitant]
     Indication: DRUG USE FOR UNKNOWN INDICATION
  5. SYMBICORT [Concomitant]
     Indication: DRUG USE FOR UNKNOWN INDICATION
  6. ALBUTEROL [Concomitant]
     Indication: DRUG USE FOR UNKNOWN INDICATION
  7. ALLERGY INJECTION [Concomitant]
     Indication: DRUG USE FOR UNKNOWN INDICATION
     Dosage: UNK

REACTIONS (3)
  - LIP SWELLING [None]
  - PRURITUS [None]
  - URTICARIA [None]
